FAERS Safety Report 10366522 (Version 1)
Quarter: 2014Q3

REPORT INFORMATION
  Report Type: Spontaneous
  Country: TW (occurrence: None)
  Receive Date: 20140804
  Receipt Date: 20140804
  Transmission Date: 20150326
  Serious: Yes (Other)
  Sender: FDA-Public Use
  Company Number: FK201402976

PATIENT
  Age: 50 Year
  Sex: Male
  Weight: 100 kg

DRUGS (7)
  1. HALOPERIDOL. [Suspect]
     Active Substance: HALOPERIDOL
     Indication: SCHIZOPHRENIA
     Dosage: 17.5 MG, 1 IN 1 D, UNKNOWN
  2. CLOZAPINE (CLOZAPINE) [Suspect]
     Active Substance: CLOZAPINE
     Indication: PSYCHOTIC DISORDER
     Dosage: 725 MG, 1 IN 1 D, UNKNOWN
  3. AMISULPRIDE (AMISULPRIDE) [Suspect]
     Active Substance: AMISULPRIDE
     Indication: SCHIZOPHRENIA
     Dosage: 400 MG, 1 IN 1 D, UNKNOWN
  4. CLONAZEPAM. [Suspect]
     Active Substance: CLONAZEPAM
     Indication: SCHIZOPHRENIA
     Dosage: 4 MG, 1 IN 1 D, UNKNOWN
  5. CLONIDINE HYDROCHLORIDE. [Suspect]
     Active Substance: CLONIDINE HYDROCHLORIDE
     Indication: SALIVARY HYPERSECRETION
     Dosage: 0.15 MG, 1 IN 1 D, UNKNOWN
  6. PROPRANOLOL HYDROCHLORIDE. [Suspect]
     Active Substance: PROPRANOLOL HYDROCHLORIDE
     Indication: AKATHISIA
     Dosage: 40 MG, 1 IN 1 D, UNKNOWN
  7. VALPROATE (MANUFACTURER UNKNOWN) (VALPROATE SODIUM) (VALPROATE SODIUM) [Suspect]
     Active Substance: VALPROATE SODIUM
     Indication: SCHIZOPHRENIA
     Dosage: 2000 MG, 1 IN 1 D, UNKNOWN

REACTIONS (10)
  - Screaming [None]
  - Grandiosity [None]
  - Sedation [None]
  - Poor personal hygiene [None]
  - Aggression [None]
  - Persecutory delusion [None]
  - Metabolic syndrome [None]
  - Drooling [None]
  - Hallucination, auditory [None]
  - Therapeutic product ineffective [None]
